FAERS Safety Report 23806036 (Version 1)
Quarter: 2024Q2

REPORT INFORMATION
  Report Type: Spontaneous
  Country: US (occurrence: US)
  Receive Date: 20240502
  Receipt Date: 20240502
  Transmission Date: 20240716
  Serious: Yes (Other)
  Sender: FDA-Public Use
  Company Number: US-UCBSA-2023026485

PATIENT
  Age: 80 Year
  Sex: Female

DRUGS (1)
  1. CIMZIA [Suspect]
     Active Substance: CERTOLIZUMAB PEGOL
     Indication: Rheumatoid arthritis
     Dosage: 400 MILLIGRAM, EV 2 WEEKS(QOW) (TOOK ONLY 1 DOSE)
     Route: 058
     Dates: start: 202305, end: 202305

REACTIONS (4)
  - Rheumatoid arthritis [Unknown]
  - Skin exfoliation [Unknown]
  - Burning sensation [Unknown]
  - Therapy change [Unknown]

NARRATIVE: CASE EVENT DATE: 20230501
